FAERS Safety Report 7226690-6 (Version None)
Quarter: 2011Q1

REPORT INFORMATION
  Report Type: 
  Country: None (occurrence: None)
  Receive Date: 20110105
  Receipt Date: 20101220
  Transmission Date: 20110831
  Serious: Yes (Life-Threatening, Hospitalization)
  Sender: FDA-Public Use
  Company Number: 2008002913

PATIENT
  Age: 77 Year
  Sex: Female
  Weight: 66.4 kg

DRUGS (16)
  1. BEVACIZUMAB (INJECTION FOR INFUSION) [Suspect]
     Indication: NON-SMALL CELL LUNG CANCER
     Dosage: (1100 ,1 X PER 3 WEEKS), INTRAVENOUS
     Route: 042
     Dates: start: 20080415, end: 20080916
  2. CLONAZEPAM [Concomitant]
  3. ERLOTINIB (ERLOTINIB) (TABLET) (ERLOTINIB) [Suspect]
     Indication: NON-SMALL CELL LUNG CANCER
     Dosage: (100 ,1 X PER DAY), ORAL
     Route: 048
     Dates: start: 20080916, end: 20080916
  4. HYDROCHLOROTHIAZIDE [Concomitant]
  5. PRILOSEC (OMEPRAZOLE) [Concomitant]
  6. OXYGEN (OXYGEN) [Concomitant]
  7. ADVAIR (FLUTICASONE PROPIONATE) [Concomitant]
  8. FLUOXETINE [Concomitant]
  9. SPIRIVA [Concomitant]
  10. FOSAMAX [Concomitant]
  11. ACETAMINOPHEN [Concomitant]
  12. CALCIUM (CALCIUM) [Concomitant]
  13. COUMADIN [Concomitant]
  14. DIGOXIN [Concomitant]
  15. CARDIZEM CD [Concomitant]
  16. PREDNISONE TAB [Concomitant]

REACTIONS (6)
  - HYPOXIA [None]
  - CARDIAC FAILURE CONGESTIVE [None]
  - ATRIOVENTRICULAR BLOCK FIRST DEGREE [None]
  - LUNG INFILTRATION [None]
  - RESPIRATORY FAILURE [None]
  - BLOOD PRESSURE DECREASED [None]
